FAERS Safety Report 15491901 (Version 1)
Quarter: 2018Q4

REPORT INFORMATION
  Report Type: Spontaneous
  Country: US (occurrence: US)
  Receive Date: 20181011
  Receipt Date: 20181011
  Transmission Date: 20190205
  Serious: Yes (Life-Threatening, Other)
  Sender: FDA-Public Use
  Company Number: None

PATIENT
  Age: 80 Year
  Sex: Male
  Weight: 85.5 kg

DRUGS (4)
  1. SOTALOL. [Suspect]
     Active Substance: SOTALOL
  2. ESMOLOL [Concomitant]
     Active Substance: ESMOLOL HYDROCHLORIDE
  3. AMIODARONE [Suspect]
     Active Substance: AMIODARONE
  4. METOPROLOL. [Concomitant]
     Active Substance: METOPROLOL

REACTIONS (4)
  - Therapy cessation [None]
  - Bradycardia [None]
  - Electrocardiogram QT prolonged [None]
  - Torsade de pointes [None]

NARRATIVE: CASE EVENT DATE: 20181008
